FAERS Safety Report 13648983 (Version 1)
Quarter: 2017Q2

REPORT INFORMATION
  Report Type: Spontaneous
  Country: FR (occurrence: FR)
  Receive Date: 20170613
  Receipt Date: 20170613
  Transmission Date: 20170830
  Serious: Yes (Other)
  Sender: FDA-Public Use
  Company Number: FR-009507513-1706FRA004397

PATIENT
  Age: 40 Year
  Sex: Female

DRUGS (2)
  1. STROMECTOL [Suspect]
     Active Substance: IVERMECTIN
     Indication: PARASITIC INFECTION PROPHYLAXIS
     Dosage: SINGLE DOSE, FOLLOWED BY A 2ND DOSE 7-10 DAYS AFTER
     Route: 048
     Dates: start: 201701
  2. STROMECTOL [Suspect]
     Active Substance: IVERMECTIN
     Dosage: SINGLE DOSE, FOLLOWED BY A 2ND DOSE 7-10 DAYS AFTER
     Route: 048
     Dates: start: 201703

REACTIONS (6)
  - Blood immunoglobulin G increased [Unknown]
  - Fatigue [Unknown]
  - Off label use [Unknown]
  - Cytomegalovirus infection [Unknown]
  - Product use in unapproved indication [Unknown]
  - Alanine aminotransferase increased [Unknown]

NARRATIVE: CASE EVENT DATE: 201701
